FAERS Safety Report 6278516-5 (Version None)
Quarter: 2009Q3

REPORT INFORMATION
  Report Type: 
  Country: None (occurrence: None)
  Receive Date: 20090721
  Receipt Date: 20090713
  Transmission Date: 20100115
  Serious: Yes (Death, Other)
  Sender: FDA-Public Use
  Company Number: 2009008608

PATIENT
  Age: 80 Year
  Sex: Male
  Weight: 64.8644 kg

DRUGS (10)
  1. TRISENOX [Suspect]
     Indication: MYELODYSPLASTIC SYNDROME
     Dosage: 16 MG, BI-WEEKLY, INTRAVENOUS (NOT OTHERWISE SPECIFIED)
     Route: 042
     Dates: start: 20040920
  2. THALOMID [Concomitant]
  3. IRON (IRON) [Concomitant]
  4. LASIX [Concomitant]
  5. OXYCODONE HCL [Concomitant]
  6. LEVAQUIN [Concomitant]
  7. ACYCLOVIR [Concomitant]
  8. FAMVIR [Concomitant]
  9. AMBIEN [Concomitant]
  10. POTASSIUM (POTASSIUM) [Concomitant]

REACTIONS (4)
  - INFECTION [None]
  - MYOCARDIAL INFARCTION [None]
  - MYOCARDIAL ISCHAEMIA [None]
  - TREATMENT FAILURE [None]
